FAERS Safety Report 5437608-0 (Version None)
Quarter: 2007Q3

REPORT INFORMATION
  Report Type: 
  Country: None (occurrence: None)
  Receive Date: 20070831
  Receipt Date: 20070823
  Transmission Date: 20080115
  Serious: Yes (Hospitalization, Other)
  Sender: FDA-Public Use
  Company Number: US-ROCHE-467341

PATIENT
  Age: 18 Year
  Sex: Male
  Weight: 74.8 kg

DRUGS (6)
  1. ACCUTANE [Suspect]
     Route: 048
     Dates: start: 19970301, end: 19970501
  2. ACCUTANE [Suspect]
     Route: 048
     Dates: start: 19980219, end: 19980519
  3. ACCUTANE [Suspect]
     Route: 048
  4. AMOXIL [Concomitant]
     Indication: PHARYNGITIS
     Dates: start: 19980512
  5. SPORANOX [Concomitant]
     Dates: start: 19980512
  6. DOXYCYCLINE [Concomitant]
     Dates: start: 19980219

REACTIONS (9)
  - ANAEMIA [None]
  - CELLULITIS [None]
  - COLITIS [None]
  - COLITIS ULCERATIVE [None]
  - CROHN'S DISEASE [None]
  - ILEITIS [None]
  - INFLAMMATORY BOWEL DISEASE [None]
  - PROCTITIS ULCERATIVE [None]
  - PSORIASIS [None]
